FAERS Safety Report 23252890 (Version 2)
Quarter: 2023Q4

REPORT INFORMATION
  Report Type: Spontaneous
  Country: US (occurrence: US)
  Receive Date: 20231201
  Receipt Date: 20231201
  Transmission Date: 20240110
  Serious: No
  Sender: FDA-Public Use
  Company Number: US-ORG100016242-2023000213

PATIENT
  Age: 75 Year
  Sex: Female

DRUGS (1)
  1. ZILRETTA [Suspect]
     Active Substance: TRIAMCINOLONE ACETONIDE
     Indication: Arthralgia
     Dosage: DOSAGE NOT PROVIDED
     Route: 014
     Dates: start: 20230706, end: 20230706

REACTIONS (3)
  - Drug ineffective [Unknown]
  - Off label use [Unknown]
  - Injection site discomfort [Unknown]

NARRATIVE: CASE EVENT DATE: 20230706
